FAERS Safety Report 4386520-7 (Version None)
Quarter: 2004Q2

REPORT INFORMATION
  Report Type: 
  Country: None (occurrence: None)
  Receive Date: 20040623
  Receipt Date: 20040608
  Transmission Date: 20050107
  Serious: Yes (Other)
  Sender: FDA-Public Use
  Company Number: 8006349

PATIENT
  Age: 76 Year
  Sex: Male

DRUGS (2)
  1. KEPPRA [Suspect]
     Dosage: 1000 MG 2/D PO
     Route: 048
     Dates: start: 20030512
  2. ZOCOR [Concomitant]

REACTIONS (1)
  - PLATELET COUNT DECREASED [None]
